FAERS Safety Report 4844881-6 (Version None)
Quarter: 2005Q4

REPORT INFORMATION
  Report Type: 
  Country: None (occurrence: None)
  Receive Date: 20051123
  Receipt Date: 20051115
  Transmission Date: 20060501
  Serious: Yes (Hospitalization)
  Sender: FDA-Public Use
  Company Number: CIP05002655

PATIENT
  Age: 56 Year
  Sex: Male

DRUGS (2)
  1. MESALAMINE [Suspect]
     Indication: COLITIS ULCERATIVE
     Dosage: 2000 MG DAILY, ORAL
     Route: 048
  2. MELOXICAM(MELOXICAM) [Suspect]
     Indication: SPONDYLOARTHROPATHY
     Dosage: 15 MG DAILY

REACTIONS (10)
  - ANOREXIA [None]
  - LEUKOCYTOSIS [None]
  - MALAISE [None]
  - NEPHROPATHY TOXIC [None]
  - NORMOCHROMIC NORMOCYTIC ANAEMIA [None]
  - PYREXIA [None]
  - RENAL FAILURE ACUTE [None]
  - RENAL FAILURE CHRONIC [None]
  - TUBULOINTERSTITIAL NEPHRITIS [None]
  - WHITE BLOOD CELL COUNT INCREASED [None]
